FAERS Safety Report 16780904 (Version 1)
Quarter: 2019Q3

REPORT INFORMATION
  Report Type: Report from Study
  Country: US (occurrence: US)
  Receive Date: 20190906
  Receipt Date: 20190906
  Transmission Date: 20191005
  Serious: No
  Sender: FDA-Public Use
  Company Number: US-EMD SERONO-9106386

PATIENT
  Age: 64 Year
  Sex: Female

DRUGS (2)
  1. MAVENCLAD [Suspect]
     Active Substance: CLADRIBINE
     Indication: MULTIPLE SCLEROSIS
     Dosage: FIRST COURSE
     Dates: start: 20190612
  2. MAVENCLAD [Suspect]
     Active Substance: CLADRIBINE
     Dosage: SECOND COURSE: TWO TABLETS (EACH OF 10 MG) ON DAYS 1 TO 2 AND ONE TABLET ON DAYS 3 TO 5
     Dates: end: 20190717

REACTIONS (1)
  - Gait disturbance [Recovering/Resolving]

NARRATIVE: CASE EVENT DATE: 201907
